FAERS Safety Report 7406507-7 (Version None)
Quarter: 2011Q2

REPORT INFORMATION
  Report Type: 
  Country: None (occurrence: None)
  Receive Date: 20110405
  Receipt Date: 20110405
  Transmission Date: 20111010
  Serious: Yes (Death)
  Sender: FDA-Public Use
  Company Number: None

PATIENT
  Age: 72 Year
  Sex: Male

DRUGS (1)
  1. INDOMETHACIN [Suspect]
     Indication: GOUT
     Dosage: ONE CAPSULE 3 TIMES A DAY PO
     Route: 048
     Dates: start: 20110323, end: 20110327

REACTIONS (11)
  - HYPERSENSITIVITY [None]
  - CARDIO-RESPIRATORY ARREST [None]
  - MULTI-ORGAN FAILURE [None]
  - PH BODY FLUID ABNORMAL [None]
  - SWELLING FACE [None]
  - HAEMODIALYSIS [None]
  - UNRESPONSIVE TO STIMULI [None]
  - RENAL FAILURE [None]
  - CARDIAC ARREST [None]
  - NECK PAIN [None]
  - SKIN DISCOLOURATION [None]
